FAERS Safety Report 8694309 (Version 2)
Quarter: 2012Q4

REPORT INFORMATION
  Report Type: 
  Country: BR (occurrence: BR)
  Receive Date: 20120731
  Receipt Date: 20120914
  Transmission Date: 20130627
  Serious: Yes (Hospitalization, Other)
  Sender: FDA-Public Use
  Company Number: BR-SANOFI-AVENTIS-2012SA052003

PATIENT
  Age: 87 Year
  Sex: Female

DRUGS (3)
  1. LANTUS [Suspect]
     Indication: TYPE 2 DIABETES MELLITUS
     Route: 058
     Dates: start: 2010
  2. AUTOPEN 24 [Suspect]
     Indication: DEVICE THERAPY
     Dates: start: 2010
  3. DIOVANE [Concomitant]
     Indication: HYPERTENSION
     Route: 048
     Dates: start: 2009

REACTIONS (6)
  - Pneumonia [Unknown]
  - Delirium [Unknown]
  - Parkinson^s disease [Not Recovered/Not Resolved]
  - Dementia Alzheimer^s type [Not Recovered/Not Resolved]
  - Hyperglycaemia [Unknown]
  - Hypoglycaemia [Unknown]
